FAERS Safety Report 10152787 (Version 3)
Quarter: 2015Q4

REPORT INFORMATION
  Report Type: Spontaneous
  Country: US (occurrence: US)
  Receive Date: 20140505
  Receipt Date: 20151119
  Transmission Date: 20160304
  Serious: Yes (Other)
  Sender: FDA-Public Use
  Company Number: US-PFIZER INC-2014119154

PATIENT
  Age: 61 Year
  Sex: Male
  Weight: 84.84 kg

DRUGS (14)
  1. LANTUS [Concomitant]
     Active Substance: INSULIN GLARGINE
     Dosage: 18 IU, DAILY (18 UNITS BY SUBCUTANEOUS ROUTE NIGHTLY
  2. REVATIO [Suspect]
     Active Substance: SILDENAFIL CITRATE
     Indication: PULMONARY HYPERTENSION
     Dosage: UNK, 3X/DAY
     Route: 048
  3. LEXAPRO [Concomitant]
     Active Substance: ESCITALOPRAM OXALATE
     Dosage: 20 MG, DAILY
     Route: 048
  4. NOVOLOG [Concomitant]
     Active Substance: INSULIN ASPART
     Dosage: 18 IU, DAILY AT NIGHT
  5. NORVASC [Concomitant]
     Active Substance: AMLODIPINE BESYLATE
     Dosage: 5 MG, DAILY
     Route: 048
  6. VIBRAMYCIN [Concomitant]
     Active Substance: DOXYCYCLINE
     Indication: ANTIBIOTIC PROPHYLAXIS
     Dosage: 100 MG, 2X/DAY
     Route: 048
  7. LASIX [Concomitant]
     Active Substance: FUROSEMIDE
     Indication: POLYURIA
     Dosage: 20 MG, DAILY
     Route: 048
  8. ALDACTONE [Concomitant]
     Active Substance: SPIRONOLACTONE
     Dosage: 25 MG, DAILY
     Route: 048
  9. NOVOLOG [Concomitant]
     Active Substance: INSULIN ASPART
     Dosage: UNK, 3X/DAY
     Route: 058
  10. LANTUS [Concomitant]
     Active Substance: INSULIN GLARGINE
     Dosage: 100 IU/ML, DAILY
     Route: 058
  11. COUMADIN [Concomitant]
     Active Substance: WARFARIN SODIUM
     Dosage: 4 MG, UNK, AS DIRECTED
  12. COREG [Concomitant]
     Active Substance: CARVEDILOL
     Dosage: 50 MG, 2X/DAY
     Route: 048
  13. COUMADIN [Concomitant]
     Active Substance: WARFARIN SODIUM
     Dosage: , AS DIRECTED 3 MG, UNK
  14. MULTIVITAMIN [Concomitant]
     Active Substance: VITAMINS
     Dosage: 1 DF, DAILY
     Route: 048

REACTIONS (2)
  - Condition aggravated [Unknown]
  - Cardiac disorder [Unknown]
